FAERS Safety Report 9133363 (Version 1)
Quarter: 2013Q1

REPORT INFORMATION
  Report Type: Spontaneous
  Country: FR (occurrence: FR)
  Receive Date: 20130301
  Receipt Date: 20130301
  Transmission Date: 20140127
  Serious: Yes (Congenital Anomaly, Other)
  Sender: FDA-Public Use
  Company Number: FR-ABBOTT-13A-056-1056250-00

PATIENT
  Sex: Male

DRUGS (1)
  1. DEPAKINE CHRONO [Suspect]
     Indication: MATERNAL EXPOSURE TIMING UNSPECIFIED
     Route: 064

REACTIONS (9)
  - Attention deficit/hyperactivity disorder [Not Recovered/Not Resolved]
  - Dysmorphism [Recovered/Resolved with Sequelae]
  - Congenital foot malformation [Unknown]
  - Foetal anticonvulsant syndrome [Unknown]
  - Motor developmental delay [Recovering/Resolving]
  - Attention deficit/hyperactivity disorder [Not Recovered/Not Resolved]
  - Dyslexia [Unknown]
  - Dyspraxia [Unknown]
  - Foetal exposure during pregnancy [Unknown]
